FAERS Safety Report 5262525-9 (Version None)
Quarter: 2007Q1

REPORT INFORMATION
  Report Type: 
  Country: None (occurrence: None)
  Receive Date: 20070312
  Receipt Date: 20070226
  Transmission Date: 20070707
  Serious: Yes (Disabling)
  Sender: FDA-Public Use
  Company Number: PHHO2006EC10795

PATIENT
  Age: 50 Year
  Sex: Male

DRUGS (3)
  1. GLEEVEC [Suspect]
     Indication: CHRONIC MYELOID LEUKAEMIA
     Dosage: 600 MG, QD
     Route: 048
     Dates: start: 20060701
  2. GLEEVEC [Suspect]
     Dosage: 300 MG, QD
     Route: 048
     Dates: start: 20051010, end: 20060630
  3. GLEEVEC [Suspect]
     Dosage: 800 MG, QD
     Route: 048

REACTIONS (13)
  - ARTHRALGIA [None]
  - CONJUNCTIVAL HYPERAEMIA [None]
  - DRY MOUTH [None]
  - DRY SKIN [None]
  - EYELID OEDEMA [None]
  - FACE OEDEMA [None]
  - FATIGUE [None]
  - MUSCLE SPASMS [None]
  - MUSCULAR WEAKNESS [None]
  - MYALGIA [None]
  - PRURITUS GENERALISED [None]
  - RASH [None]
  - SKIN EXFOLIATION [None]
